FAERS Safety Report 9512439 (Version 2)
Quarter: 2014Q1

REPORT INFORMATION
  Report Type: Spontaneous
  Country: US (occurrence: None)
  Receive Date: 20130305
  Receipt Date: 20140306
  Transmission Date: 20141002
  Serious: Yes (Other)
  Sender: FDA-Public Use
  Company Number: 163-21880-12050863

PATIENT
  Age: 58 Year
  Sex: Female
  Weight: 77.1 kg

DRUGS (4)
  1. REVLIMID (LENALIDOMIDE) (CAPSULES) [Suspect]
     Indication: MYELODYSPLASTIC SYNDROME
     Route: 048
     Dates: start: 20080130
  2. VALTREX (VALACICLOVIR HYDROCHLORIDE) [Concomitant]
  3. FISH OIL [Concomitant]
  4. VITAMIN B 12 [Concomitant]

REACTIONS (7)
  - Hypochondriasis [None]
  - Hypersensitivity [None]
  - Inflammation [None]
  - Rash [None]
  - Diarrhoea [None]
  - Fatigue [None]
  - Urticaria [None]
